FAERS Safety Report 9633635 (Version 3)
Quarter: 2013Q4

REPORT INFORMATION
  Report Type: Spontaneous
  Country: BR (occurrence: BR)
  Receive Date: 20131021
  Receipt Date: 20131202
  Transmission Date: 20140711
  Serious: Yes (Other)
  Sender: FDA-Public Use
  Company Number: PHHY2013BR117580

PATIENT
  Sex: Female

DRUGS (1)
  1. FORASEQ [Suspect]
     Dosage: UNK UKN, Q12H

REACTIONS (7)
  - Bronchiectasis [Unknown]
  - Malaise [Unknown]
  - Chest pain [Unknown]
  - Pharyngeal inflammation [Unknown]
  - Device malfunction [Unknown]
  - Incorrect dose administered [Unknown]
  - Nausea [Unknown]
